FAERS Safety Report 20835058 (Version 1)
Quarter: 2022Q2

REPORT INFORMATION
  Report Type: Spontaneous
  Country: US (occurrence: None)
  Receive Date: 20220516
  Receipt Date: 20220516
  Transmission Date: 20220721
  Serious: Yes (Life-Threatening)
  Sender: FDA-Public Use
  Company Number: None

PATIENT
  Age: 77 Year
  Sex: Male
  Weight: 79.65 kg

DRUGS (1)
  1. VENOFER [Suspect]
     Active Substance: IRON SUCROSE
     Indication: Iron deficiency anaemia
     Route: 042
     Dates: start: 20220512, end: 20220512

REACTIONS (4)
  - Nausea [None]
  - Blood pressure decreased [None]
  - Chest pain [None]
  - Depressed level of consciousness [None]

NARRATIVE: CASE EVENT DATE: 20220512
